FAERS Safety Report 9053901 (Version 1)
Quarter: 2013Q1

REPORT INFORMATION
  Report Type: Spontaneous
  Country: GB (occurrence: GB)
  Receive Date: 20130206
  Receipt Date: 20130206
  Transmission Date: 20140127
  Serious: Yes (Death)
  Sender: FDA-Public Use
  Company Number: GB-ACCORD-016216

PATIENT
  Age: 72 Year
  Sex: Female
  Weight: 55 kg

DRUGS (6)
  1. DONEPEZIL [Suspect]
     Indication: DEMENTIA WITH LEWY BODIES
  2. ENOXAPARIN [Concomitant]
     Dosage: 20MG IN 0.2ML
     Route: 058
  3. ADCAL-D3 [Concomitant]
     Route: 048
  4. MAGNESIUM HYDROXIDE [Concomitant]
  5. SENNOSIDE [Concomitant]
     Dosage: AT NIGHT
  6. PARACETAMOL [Concomitant]
     Dosage: 2 TABLETS FOUR TIMES A DAY

REACTIONS (1)
  - Gastrointestinal haemorrhage [Fatal]
